FAERS Safety Report 10256623 (Version 2)
Quarter: 2014Q3

REPORT INFORMATION
  Report Type: Spontaneous
  Country: US (occurrence: NO)
  Receive Date: 20140624
  Receipt Date: 20140702
  Transmission Date: 20150326
  Serious: Yes (Other)
  Sender: FDA-Public Use
  Company Number: NO-FRI-1000068465

PATIENT
  Sex: Female
  Weight: 68 kg

DRUGS (2)
  1. LINACLOTIDE [Suspect]
     Active Substance: LINACLOTIDE
     Indication: IRRITABLE BOWEL SYNDROME
     Dosage: TAKES DRUG WHEN SUITABLE (1 DOSAGE FORM, 2 IN 1 WK)
  2. CERAZETTE [Concomitant]
     Active Substance: DESOGESTREL
     Indication: CONTRACEPTION
     Dosage: UNK

REACTIONS (4)
  - Gastrointestinal sounds abnormal [Not Recovered/Not Resolved]
  - Faecal incontinence [Recovered/Resolved with Sequelae]
  - Flatulence [Not Recovered/Not Resolved]
  - Diarrhoea [Not Recovered/Not Resolved]
